FAERS Safety Report 5878306-9 (Version None)
Quarter: 2008Q3

REPORT INFORMATION
  Report Type: 
  Country: None (occurrence: None)
  Receive Date: 20080911
  Receipt Date: 20080902
  Transmission Date: 20090109
  Serious: Yes (Other)
  Sender: FDA-Public Use
  Company Number: US-PFIZER INC-2008073400

PATIENT
  Sex: Female

DRUGS (1)
  1. DEPO-PROVERA SUSPENSION/INJ [Suspect]
     Indication: CONTRACEPTION
     Dates: end: 20070101

REACTIONS (7)
  - ALOPECIA [None]
  - BACK PAIN [None]
  - CHRONIC FATIGUE SYNDROME [None]
  - DEPRESSION [None]
  - HAEMOPHILIA [None]
  - MOOD ALTERED [None]
  - OSTEOPOROSIS [None]
